FAERS Safety Report 7720470-0 (Version None)
Quarter: 2011Q3

REPORT INFORMATION
  Report Type: 
  Country: None (occurrence: None)
  Receive Date: 20110831
  Receipt Date: 20101222
  Transmission Date: 20111222
  Serious: No
  Sender: FDA-Public Use
  Company Number: US-KINGPHARMUSA00001-K201001539

PATIENT
  Age: 51 Year
  Sex: Female

DRUGS (1)
  1. PENICILLIN G PROCAINE [Suspect]
     Dosage: UNK

REACTIONS (1)
  - RASH [None]
